FAERS Safety Report 9211158 (Version 1)
Quarter: 2013Q2

REPORT INFORMATION
  Report Type: Spontaneous
  Country: US (occurrence: US)
  Receive Date: 20130404
  Receipt Date: 20130404
  Transmission Date: 20140414
  Serious: Yes (Other)
  Sender: FDA-Public Use
  Company Number: US-BAXTER-2013BAX009760

PATIENT
  Age: 65 Year
  Sex: Male

DRUGS (2)
  1. DIANEAL LOW CALCIUM [Suspect]
     Indication: PERITONEAL DIALYSIS
     Route: 033
     Dates: start: 201207, end: 20130305
  2. EXTRANEAL [Suspect]
     Indication: PERITONEAL DIALYSIS
     Route: 033
     Dates: start: 201207, end: 20130305

REACTIONS (5)
  - Malaise [Recovering/Resolving]
  - Catheter site erythema [Recovered/Resolved]
  - Catheter site infection [Recovered/Resolved]
  - Staphylococcal infection [Recovered/Resolved]
  - Peritonitis bacterial [Recovering/Resolving]
